FAERS Safety Report 18884452 (Version 3)
Quarter: 2024Q1

REPORT INFORMATION
  Report Type: Spontaneous
  Country: US (occurrence: US)
  Receive Date: 20210211
  Receipt Date: 20240202
  Transmission Date: 20240410
  Serious: Yes (Hospitalization)
  Sender: FDA-Public Use
  Company Number: US-GSKCCFUS-CASE-00967040_AE-57283

PATIENT
  Sex: Female

DRUGS (2)
  1. TRELEGY ELLIPTA [Suspect]
     Active Substance: FLUTICASONE FUROATE\UMECLIDINIUM BROMIDE\VILANTEROL TRIFENATATE
     Indication: Product used for unknown indication
     Dosage: UNK, 100/62.5/25 MCG 30D (3 YEARS OR MORE)
     Route: 055
  2. ALBUTEROL [Concomitant]
     Active Substance: ALBUTEROL
     Indication: Product used for unknown indication
     Dosage: UNK ; RESCUE INHALER

REACTIONS (6)
  - Hospitalisation [Unknown]
  - Malaise [Unknown]
  - Nasopharyngitis [Unknown]
  - Illness [Unknown]
  - Drug ineffective [Unknown]
  - Product complaint [Unknown]
